FAERS Safety Report 10499478 (Version 2)
Quarter: 2014Q4

REPORT INFORMATION
  Report Type: Report from Study
  Country: US (occurrence: US)
  Receive Date: 20141006
  Receipt Date: 20141009
  Transmission Date: 20150528
  Serious: Yes (Life-Threatening)
  Sender: FDA-Public Use
  Company Number: US-009507513-1409USA015013

PATIENT

DRUGS (9)
  1. DEXAMETHASONE. [Concomitant]
     Active Substance: DEXAMETHASONE
     Dosage: 20 MG, 30 MINUTES BEFORE TREATMENT
     Route: 042
  2. TEMODAR [Suspect]
     Active Substance: TEMOZOLOMIDE
     Dosage: SINGLE DOSE ESCALATION 200 MG/M2/D, ONCE,
     Route: 065
  3. RANITIDINE [Concomitant]
     Active Substance: RANITIDINE\RANITIDINE HYDROCHLORIDE
     Dosage: 50 MG, 30 MINUTES BEFORE TREATMENT
     Route: 042
  4. PACLITAXEL POLIGLUMEX [Suspect]
     Active Substance: PACLITAXEL POLIGLUMEX
     Indication: CHEMOTHERAPY
     Dosage: PER 10 MIN ON DAY 1,8,15,22,29 AND 36
  5. TEMODAR [Suspect]
     Active Substance: TEMOZOLOMIDE
     Indication: CHEMOTHERAPY
     Dosage: 75 MG/M2/D, 6 WEEKS 1 HOUR BEFORE RADIATION
  6. PACLITAXEL POLIGLUMEX [Suspect]
     Active Substance: PACLITAXEL POLIGLUMEX
     Indication: GLIOMA
  7. DIPHENHYDRAMINE HYDROCHLORIDE. [Concomitant]
     Active Substance: DIPHENHYDRAMINE HYDROCHLORIDE
     Dosage: 25 MG, 30 MINUTES BEFORE TREATMENT
     Route: 042
  8. ANTIEMETICS [Concomitant]
     Active Substance: UNSPECIFIED INGREDIENT
  9. TEMODAR [Suspect]
     Active Substance: TEMOZOLOMIDE
     Indication: GLIOMA
     Dosage: 5 CONSECUTIVE DAYS  OF 28 CYCLE FOR MINIMUM 6 MONTHS150 MG/KG, QD
     Route: 065

REACTIONS (1)
  - Haematotoxicity [Unknown]
